FAERS Safety Report 10771796 (Version 1)
Quarter: 2015Q1

REPORT INFORMATION
  Report Type: Report from Study
  Country: GB (occurrence: GB)
  Receive Date: 20150206
  Receipt Date: 20150206
  Transmission Date: 20150721
  Serious: Yes (Hospitalization, Other)
  Sender: FDA-Public Use
  Company Number: GB-ABBVIE-15P-167-1341026-00

PATIENT
  Age: 47 Year
  Sex: Male

DRUGS (1)
  1. HUMIRA [Suspect]
     Active Substance: ADALIMUMAB
     Indication: CROHN^S DISEASE
     Route: 058
     Dates: start: 20140326

REACTIONS (10)
  - Nausea [Recovered/Resolved]
  - Constipation [Recovered/Resolved]
  - Lung consolidation [Unknown]
  - Flatulence [Unknown]
  - Small intestinal obstruction [Recovered/Resolved]
  - Abdominal pain [Unknown]
  - Abdominal pain lower [Recovered/Resolved]
  - Intestinal dilatation [Unknown]
  - Retching [Recovered/Resolved]
  - Atelectasis [Unknown]

NARRATIVE: CASE EVENT DATE: 20150126
